FAERS Safety Report 20309303 (Version 3)
Quarter: 2022Q4

REPORT INFORMATION
  Report Type: Spontaneous
  Country: CA (occurrence: CA)
  Receive Date: 20220107
  Receipt Date: 20221026
  Transmission Date: 20230112
  Serious: Yes (Other)
  Sender: FDA-Public Use
  Company Number: CA-SAMSUNG BIOEPIS-SB-2020-30842

PATIENT
  Age: 51 Year
  Sex: Female
  Weight: 59 kg

DRUGS (4)
  1. INFLIXIMAB [Suspect]
     Active Substance: INFLIXIMAB
     Indication: Crohn^s disease
     Route: 042
  2. ISONIAZID [Concomitant]
     Active Substance: ISONIAZID
     Indication: Latent tuberculosis
     Dosage: UNKNOWN
     Route: 065
  3. PREDNISONE [Concomitant]
     Active Substance: PREDNISONE
     Indication: Product used for unknown indication
     Dosage: UNKNOWN
     Route: 065
  4. SOLU-MEDROL [Concomitant]
     Active Substance: METHYLPREDNISOLONE SODIUM SUCCINATE
     Indication: Product used for unknown indication
     Route: 065

REACTIONS (22)
  - Arthralgia [Not Recovered/Not Resolved]
  - Mouth ulceration [Not Recovered/Not Resolved]
  - Psoriasis [Not Recovered/Not Resolved]
  - Vulvovaginal erythema [Not Recovered/Not Resolved]
  - Abscess [Not Recovered/Not Resolved]
  - Anal abscess [Not Recovered/Not Resolved]
  - Anal fissure [Not Recovered/Not Resolved]
  - Anal fistula [Not Recovered/Not Resolved]
  - Contusion [Not Recovered/Not Resolved]
  - Pain [Not Recovered/Not Resolved]
  - Pain in extremity [Not Recovered/Not Resolved]
  - Peripheral venous disease [Not Recovered/Not Resolved]
  - Gingivitis [Not Recovered/Not Resolved]
  - Erythema [Not Recovered/Not Resolved]
  - Vaginal infection [Not Recovered/Not Resolved]
  - Nasopharyngitis [Not Recovered/Not Resolved]
  - Blood pressure fluctuation [Not Recovered/Not Resolved]
  - Myalgia [Recovered/Resolved]
  - Drug ineffective [Not Recovered/Not Resolved]
  - Intentional product use issue [Not Recovered/Not Resolved]
  - Inappropriate schedule of product administration [Not Recovered/Not Resolved]
  - Off label use [Not Recovered/Not Resolved]
